FAERS Safety Report 17084179 (Version 7)
Quarter: 2020Q2

REPORT INFORMATION
  Report Type: Report from Study
  Country: US (occurrence: US)
  Receive Date: 20191127
  Receipt Date: 20200407
  Transmission Date: 20200713
  Serious: Yes (Other)
  Sender: FDA-Public Use
  Company Number: NVSC2019US050341

PATIENT
  Age: 80 Year
  Sex: Female

DRUGS (4)
  1. BEOVU [Suspect]
     Active Substance: BROLUCIZUMAB-DBLL
     Indication: AGE-RELATED MACULAR DEGENERATION
     Dosage: UNK (VIAL)
     Route: 047
     Dates: start: 20191114
  2. BEOVU [Suspect]
     Active Substance: BROLUCIZUMAB-DBLL
     Dosage: UNK
     Route: 047
     Dates: start: 20191220
  3. BEOVU [Suspect]
     Active Substance: BROLUCIZUMAB-DBLL
     Dosage: UNK
     Route: 047
     Dates: start: 20191113
  4. BEOVU [Suspect]
     Active Substance: BROLUCIZUMAB-DBLL
     Dosage: UNK
     Route: 047
     Dates: start: 20200326

REACTIONS (14)
  - Hypoaesthesia [Recovered/Resolved]
  - Memory impairment [Unknown]
  - Sinusitis [Recovering/Resolving]
  - Meniere^s disease [Unknown]
  - Paraesthesia [Recovered/Resolved]
  - Sensitisation [Recovered/Resolved]
  - Hordeolum [Recovering/Resolving]
  - Cough [Unknown]
  - Vitreous floaters [Recovered/Resolved]
  - Eye discharge [Unknown]
  - Bone pain [Unknown]
  - Eye pain [Recovered/Resolved]
  - Nasopharyngitis [Recovering/Resolving]
  - Dizziness [Unknown]

NARRATIVE: CASE EVENT DATE: 20191121
